FAERS Safety Report 10351355 (Version 2)
Quarter: 2014Q4

REPORT INFORMATION
  Report Type: Spontaneous
  Country: IT (occurrence: IT)
  Receive Date: 20140730
  Receipt Date: 20141121
  Transmission Date: 20150528
  Serious: Yes (Hospitalization)
  Sender: FDA-Public Use
  Company Number: IT-PFIZER INC-2014211724

PATIENT
  Age: 48 Year
  Sex: Female

DRUGS (3)
  1. XANAX [Suspect]
     Active Substance: ALPRAZOLAM
     Dosage: 30 ML, SINGLE
     Route: 048
     Dates: start: 20140617, end: 20140617
  2. STILNOX [Suspect]
     Active Substance: ZOLPIDEM TARTRATE
     Dosage: 550 MG, SINGLE
     Route: 048
     Dates: start: 20140617, end: 20140617
  3. FLUNOX [Suspect]
     Active Substance: FLURAZEPAM HYDROCHLORIDE
     Dosage: 570 MG, SINGLE
     Route: 048
     Dates: start: 20140617, end: 20140617

REACTIONS (4)
  - Overdose [Recovered/Resolved]
  - Drug abuse [Recovered/Resolved]
  - Intentional self-injury [Recovered/Resolved]
  - Sopor [Recovered/Resolved]

NARRATIVE: CASE EVENT DATE: 20140617
